FAERS Safety Report 15359978 (Version 2)
Quarter: 2018Q3

REPORT INFORMATION
  Report Type: Spontaneous
  Country: JP (occurrence: JP)
  Receive Date: 20180907
  Receipt Date: 20180914
  Transmission Date: 20181010
  Serious: Yes (Hospitalization, Other)
  Sender: FDA-Public Use
  Company Number: JP-ORION CORPORATION ORION PHARMA-ENT 2018-0090

PATIENT
  Sex: Male

DRUGS (13)
  1. COMTAN [Suspect]
     Active Substance: ENTACAPONE
     Indication: PARKINSON^S DISEASE
     Route: 048
  2. TRERIEF [Concomitant]
     Active Substance: ZONISAMIDE
     Route: 065
  3. MENESIT [Concomitant]
     Active Substance: CARBIDOPA\LEVODOPA
     Route: 065
  4. RISPERDAL [Concomitant]
     Active Substance: RISPERIDONE
     Route: 065
  5. MIRAPEX [Concomitant]
     Active Substance: PRAMIPEXOLE DIHYDROCHLORIDE
     Route: 065
  6. DOPASTON [Concomitant]
     Active Substance: LEVODOPA
     Route: 065
  7. NEUPRO [Concomitant]
     Active Substance: ROTIGOTINE
     Route: 065
  8. COMTAN [Suspect]
     Active Substance: ENTACAPONE
     Route: 048
  9. COMTAN [Suspect]
     Active Substance: ENTACAPONE
     Route: 048
  10. MADOPAR [Concomitant]
     Active Substance: BENSERAZIDE HYDROCHLORIDE\LEVODOPA
     Route: 065
  11. MADOPAR [Concomitant]
     Active Substance: BENSERAZIDE HYDROCHLORIDE\LEVODOPA
     Route: 065
  12. ARICEPT [Concomitant]
     Active Substance: DONEPEZIL HYDROCHLORIDE
     Route: 065
  13. FP [Concomitant]
     Active Substance: SELEGILINE HYDROCHLORIDE
     Route: 065

REACTIONS (11)
  - Colon cancer [Unknown]
  - Abdominal rigidity [Unknown]
  - Hallucination, visual [Unknown]
  - Gastrointestinal polyp haemorrhage [Unknown]
  - Abdominal distension [Unknown]
  - Haematemesis [Unknown]
  - Dementia [Unknown]
  - Spinal compression fracture [Unknown]
  - Anaemia [Unknown]
  - Fall [Unknown]
  - On and off phenomenon [Unknown]
